FAERS Safety Report 5744490-0 (Version None)
Quarter: 2008Q2

REPORT INFORMATION
  Report Type: 
  Country: None (occurrence: None)
  Receive Date: 20080520
  Receipt Date: 20080515
  Transmission Date: 20081010
  Serious: Yes (Death)
  Sender: FDA-Public Use
  Company Number: ZA-ABBOTT-08P-143-0451921-00

PATIENT
  Sex: Male

DRUGS (2)
  1. HUMIRA [Suspect]
     Indication: ANKYLOSING SPONDYLITIS
  2. HUMIRA [Suspect]
     Indication: CROHN'S DISEASE

REACTIONS (3)
  - ASPERGILLOSIS [None]
  - HAEMORRHAGE [None]
  - PULMONARY MASS [None]
